FAERS Safety Report 4745791-5 (Version None)
Quarter: 2005Q3

REPORT INFORMATION
  Report Type: 
  Country: None (occurrence: None)
  Receive Date: 20050815
  Receipt Date: 20050815
  Transmission Date: 20060218
  Serious: Yes (Hospitalization)
  Sender: FDA-Public Use
  Company Number: None

PATIENT
  Age: 67 Year
  Sex: Male
  Weight: 79.5 kg

DRUGS (3)
  1. PACLITAXEL [Suspect]
     Indication: NON-SMALL CELL LUNG CANCER
     Dosage: 50MG/M2  WEEKLY  INTRAVENOU
     Route: 042
     Dates: start: 20050603, end: 20050725
  2. CARBOPLATIN [Suspect]
     Indication: NON-SMALL CELL LUNG CANCER
     Dosage: AUC 2   WEEKLY  INTRAVENOU
     Route: 042
     Dates: start: 20050603, end: 20050725
  3. RADIATION [Concomitant]

REACTIONS (4)
  - DEHYDRATION [None]
  - FALL [None]
  - ORAL INTAKE REDUCED [None]
  - RADIATION DYSPHAGIA [None]
